FAERS Safety Report 26009105 (Version 2)
Quarter: 2025Q4

REPORT INFORMATION
  Report Type: Spontaneous
  Country: US (occurrence: US)
  Receive Date: 20251107
  Receipt Date: 20251221
  Transmission Date: 20260118
  Serious: No
  Sender: IPSEN BIOPHARMACEUTICALS, INC.
  Company Number: US-IPSEN Group, Research and Development-2025-27429

PATIENT
  Sex: Female

DRUGS (2)
  1. IQIRVO [Suspect]
     Active Substance: ELAFIBRANOR
     Indication: Primary biliary cholangitis
     Dosage: 80 MG TAKE 1 TABLET BY MOUTH EVERY DAY
     Route: 048
     Dates: start: 20250910
  2. VITAMIN D [Concomitant]
     Active Substance: VITAMIN D NOS

REACTIONS (5)
  - Product dose omission issue [Unknown]
  - Dizziness [Unknown]
  - Headache [Unknown]
  - Arthralgia [Unknown]
  - Diarrhoea [Unknown]
